FAERS Safety Report 7661652-6 (Version None)
Quarter: 2011Q3

REPORT INFORMATION
  Report Type: 
  Country: None (occurrence: None)
  Receive Date: 20110805
  Receipt Date: 20101115
  Transmission Date: 20111222
  Serious: No
  Sender: FDA-Public Use
  Company Number: US-ABBOTT-10P-163-0685932-00

PATIENT
  Sex: Male
  Weight: 72.64 kg

DRUGS (4)
  1. ASPIRIN [Concomitant]
     Indication: CARDIAC DISORDER
     Route: 048
  2. CRESTOR [Concomitant]
     Indication: DYSLIPIDAEMIA
     Dosage: 0.5 TAB DAILY
     Route: 048
     Dates: start: 20070101
  3. NIASPAN [Suspect]
     Indication: DYSLIPIDAEMIA
     Route: 048
     Dates: start: 20100901
  4. FISH OIL [Concomitant]
     Indication: SUPPLEMENTATION THERAPY
     Route: 048

REACTIONS (5)
  - MYALGIA [None]
  - MUSCULAR WEAKNESS [None]
  - BURNING SENSATION [None]
  - FLUSHING [None]
  - PARAESTHESIA [None]
